FAERS Safety Report 5857426-9 (Version None)
Quarter: 2008Q3

REPORT INFORMATION
  Report Type: 
  Country: None (occurrence: None)
  Receive Date: 20080826
  Receipt Date: 20080811
  Transmission Date: 20090109
  Serious: Yes (Other)
  Sender: FDA-Public Use
  Company Number: JP-ABBOTT-08P-087-0472320-00

PATIENT
  Age: 70 Year
  Sex: Male

DRUGS (8)
  1. LEUPROLIDE ACETATE [Suspect]
     Indication: PROSTATE CANCER STAGE IV
     Route: 058
     Dates: start: 20060202
  2. LEUPROLIDE ACETATE [Suspect]
     Route: 058
     Dates: start: 20051110, end: 20060105
  3. BICALUTAMIDE [Concomitant]
     Indication: PROSTATE CANCER STAGE IV
     Route: 048
     Dates: start: 20051110, end: 20070301
  4. SODIUM PICOSULFATE [Concomitant]
     Indication: CONSTIPATION
     Route: 048
     Dates: end: 20060722
  5. PURSENNID [Concomitant]
     Indication: CONSTIPATION
     Route: 048
  6. TRIAZOLAM [Concomitant]
     Indication: INSOMNIA
     Route: 048
     Dates: end: 20060622
  7. MAGNESIUM OXIDE [Concomitant]
     Indication: CONSTIPATION
     Route: 048
     Dates: start: 20060622
  8. RILMAZAFONE [Concomitant]
     Indication: INSOMNIA
     Route: 048
     Dates: start: 20080622

REACTIONS (1)
  - BLADDER CANCER RECURRENT [None]
